FAERS Safety Report 13913237 (Version 1)
Quarter: 2017Q3

REPORT INFORMATION
  Report Type: Spontaneous
  Country: US (occurrence: US)
  Receive Date: 20170828
  Receipt Date: 20170828
  Transmission Date: 20171127
  Serious: No
  Sender: FDA-Public Use
  Company Number: US-ROCHE-1129421

PATIENT
  Sex: Female
  Weight: 79.5 kg

DRUGS (6)
  1. NUTROPIN [Suspect]
     Active Substance: SOMATROPIN
     Indication: HYPOPITUITARISM
     Route: 065
     Dates: start: 199010
  2. DDAVP [Concomitant]
     Active Substance: DESMOPRESSIN ACETATE
  3. SYNTHROID [Concomitant]
     Active Substance: LEVOTHYROXINE SODIUM
  4. PREDNISONE. [Concomitant]
     Active Substance: PREDNISONE
  5. LOTREL [Concomitant]
     Active Substance: AMLODIPINE BESYLATE\BENAZEPRIL HYDROCHLORIDE
  6. NUTROPIN [Suspect]
     Active Substance: SOMATROPIN
     Route: 065
     Dates: start: 199306

REACTIONS (6)
  - Emotional disorder [Unknown]
  - Visual impairment [Unknown]
  - Hypopituitarism [Unknown]
  - Weight increased [Unknown]
  - Depression [Unknown]
  - Fatigue [Unknown]
